FAERS Safety Report 15588011 (Version 1)
Quarter: 2018Q4

REPORT INFORMATION
  Report Type: Spontaneous
  Country: US (occurrence: US)
  Receive Date: 20181105
  Receipt Date: 20181105
  Transmission Date: 20190205
  Serious: Yes (Life-Threatening, Other)
  Sender: FDA-Public Use
  Company Number: PHHY2018US146512

PATIENT
  Sex: Female

DRUGS (1)
  1. ZOFRAN [Suspect]
     Active Substance: ONDANSETRON HYDROCHLORIDE
     Indication: FOETAL EXPOSURE DURING PREGNANCY
     Dosage: UNK
     Route: 064

REACTIONS (11)
  - Genitalia external ambiguous [Unknown]
  - Congenital arterial malformation [Unknown]
  - Rib deformity [Unknown]
  - Anencephaly [Unknown]
  - Ventricular septal defect [Unknown]
  - Limb malformation [Unknown]
  - Congenital spinal cord anomaly [Unknown]
  - Premature baby [Unknown]
  - Spina bifida [Unknown]
  - Foetal exposure during pregnancy [Unknown]
  - Craniorachischisis [Unknown]
